FAERS Safety Report 7933631-2 (Version None)
Quarter: 2011Q4

REPORT INFORMATION
  Report Type: 
  Country: None (occurrence: None)
  Receive Date: 20111122
  Receipt Date: 20111109
  Transmission Date: 20120403
  Serious: Yes (Other)
  Sender: FDA-Public Use
  Company Number: PHHY2011BR099631

PATIENT
  Sex: Male

DRUGS (5)
  1. ATENOLOL [Concomitant]
     Dosage: 25 MG, (ONE TABLET DAILY)
  2. CENTRUM [Concomitant]
     Dosage: ONE TABLET DAILY
  3. VYTORIN [Concomitant]
     Indication: BLOOD CHOLESTEROL
  4. EXFORGE [Suspect]
     Indication: BLOOD PRESSURE
     Dosage: 1 DF, (160/5 MG ONE TABLET DAILY)
  5. VELORIQUIA [Concomitant]
     Indication: BLOOD URIC ACID
     Dosage: TWO TABLETS PER WEEK

REACTIONS (3)
  - PROSTATIC HAEMORRHAGE [None]
  - PROSTATOMEGALY [None]
  - OEDEMA PERIPHERAL [None]
